FAERS Safety Report 10594207 (Version 1)
Quarter: 2014Q4

REPORT INFORMATION
  Report Type: Spontaneous
  Country: FR (occurrence: FR)
  Receive Date: 20141119
  Receipt Date: 20141119
  Transmission Date: 20150529
  Serious: Yes (Other)
  Sender: FDA-Public Use
  Company Number: FR-SA-2014SA157012

PATIENT
  Age: 22 Year
  Sex: Female

DRUGS (4)
  1. ENBREL [Suspect]
     Active Substance: ETANERCEPT
     Indication: JUVENILE IDIOPATHIC ARTHRITIS
     Route: 065
     Dates: end: 201409
  2. ARAVA [Suspect]
     Active Substance: LEFLUNOMIDE
     Route: 065
  3. DOLIPRANE [Concomitant]
     Active Substance: ACETAMINOPHEN
  4. VOLTARENE [Concomitant]
     Active Substance: DICLOFENAC SODIUM

REACTIONS (2)
  - Transitional cell carcinoma urethra [Unknown]
  - Urethral polyp [Unknown]

NARRATIVE: CASE EVENT DATE: 201211
